FAERS Safety Report 7415974-4 (Version None)
Quarter: 2011Q2

REPORT INFORMATION
  Report Type: 
  Country: None (occurrence: None)
  Receive Date: 20110414
  Receipt Date: 20110412
  Transmission Date: 20111010
  Serious: Yes (Hospitalization)
  Sender: FDA-Public Use
  Company Number: PHHO2011BR06504

PATIENT
  Sex: Male
  Weight: 57 kg

DRUGS (5)
  1. AFINITOR [Suspect]
     Dosage: 5 MG, UNK
     Route: 048
     Dates: start: 20110118, end: 20110402
  2. HYDROXYZINE [Concomitant]
  3. AMN107 [Suspect]
     Indication: NEUROENDOCRINE TUMOUR
     Dosage: 5 MG, UNK
     Route: 048
     Dates: start: 20110118, end: 20110402
  4. SANDOSTATIN [Concomitant]
  5. INSULIN [Concomitant]

REACTIONS (2)
  - PNEUMONITIS [None]
  - CYANOSIS [None]
